FAERS Safety Report 9884066 (Version 1)
Quarter: 2014Q1

REPORT INFORMATION
  Report Type: Spontaneous
  Country: US (occurrence: US)
  Receive Date: 20140210
  Receipt Date: 20140210
  Transmission Date: 20141002
  Serious: No
  Sender: FDA-Public Use
  Company Number: US-ALLERGAN-1316423US

PATIENT
  Sex: Female

DRUGS (8)
  1. BOTOX [Suspect]
     Indication: MIGRAINE
     Dosage: 100 UNITS, SINGLE
     Route: 030
     Dates: start: 20130906, end: 20130906
  2. KLONOPIN [Concomitant]
     Indication: PRODUCT USED FOR UNKNOWN INDICATION
     Dosage: 0.5 MG, QD, PRN
     Route: 048
  3. LORTAB                             /00607101/ [Concomitant]
     Indication: PRODUCT USED FOR UNKNOWN INDICATION
     Dosage: 1 TAB Q4HRS PRN
     Route: 048
  4. MAXALT [Concomitant]
     Indication: HEADACHE
     Dosage: 10 MG, UNK
     Route: 048
  5. CAMBIA [Concomitant]
     Indication: HEADACHE
     Dosage: 50 MG, UNK
  6. LYRICA [Concomitant]
     Indication: PRODUCT USED FOR UNKNOWN INDICATION
     Dosage: 50MG 3 TABS, BID
     Route: 048
  7. LEXAPRO [Concomitant]
     Indication: PRODUCT USED FOR UNKNOWN INDICATION
     Dosage: 10 MG, QD
     Route: 048
  8. ZOFRAN                             /00955301/ [Concomitant]
     Indication: PRODUCT USED FOR UNKNOWN INDICATION
     Dosage: 8MG 1 TAB TID PRN
     Route: 048

REACTIONS (1)
  - Drug ineffective [Unknown]
